FAERS Safety Report 26064346 (Version 1)
Quarter: 2025Q4

REPORT INFORMATION
  Report Type: Spontaneous
  Country: US (occurrence: US)
  Receive Date: 20251119
  Receipt Date: 20251119
  Transmission Date: 20260118
  Serious: No
  Sender: ROCHE
  Company Number: US-ROCHE-10000434488

PATIENT
  Sex: Male

DRUGS (2)
  1. HEMLIBRA [Suspect]
     Active Substance: EMICIZUMAB-KXWH
     Indication: Factor VIII deficiency
     Dosage: STRENGTH : 60 MG/ 0.4 ML
     Route: 058
     Dates: start: 202408
  2. XYNTHA [Concomitant]
     Active Substance: MOROCTOCOG ALFA

REACTIONS (1)
  - Haemorrhage [Unknown]
